FAERS Safety Report 21592935 (Version 1)
Quarter: 2022Q4

REPORT INFORMATION
  Report Type: Spontaneous
  Country: US (occurrence: US)
  Receive Date: 20221114
  Receipt Date: 20221114
  Transmission Date: 20230113
  Serious: No
  Sender: FDA-Public Use
  Company Number: US-JNJFOC-20221109342

PATIENT
  Sex: Male
  Weight: 82.174 kg

DRUGS (4)
  1. ULTRAM [Suspect]
     Active Substance: TRAMADOL HYDROCHLORIDE
     Indication: Pain
     Route: 065
  2. BENADRYL [Concomitant]
     Active Substance: DIPHENHYDRAMINE HYDROCHLORIDE
     Indication: Hypersensitivity
     Route: 065
  3. CLARITIN [Concomitant]
     Active Substance: LORATADINE
     Indication: Cough
     Route: 065
  4. MUCINEX [Concomitant]
     Active Substance: GUAIFENESIN
     Indication: Cough
     Route: 065

REACTIONS (4)
  - Adverse event [Unknown]
  - Imprisonment [Unknown]
  - Urticaria [Unknown]
  - Overdose [Unknown]
